FAERS Safety Report 7557410-3 (Version None)
Quarter: 2011Q2

REPORT INFORMATION
  Report Type: 
  Country: None (occurrence: None)
  Receive Date: 20110620
  Receipt Date: 20110607
  Transmission Date: 20111010
  Serious: Yes (Other)
  Sender: FDA-Public Use
  Company Number: PHHY2011BR11191

PATIENT
  Age: 82 Year
  Sex: Female

DRUGS (8)
  1. DIOVAN [Suspect]
     Dosage: 80 MG (1 TABLETS DAILY)
     Dates: start: 20060101
  2. CALMAPAX [Concomitant]
     Indication: NERVOUSNESS
     Dosage: 1 DF, UNK
     Dates: start: 20010101
  3. DILACOR XR [Concomitant]
     Indication: HYPERTENSION
     Dosage: 80 MG, 1 TABLET DAILY
     Dates: start: 20040101
  4. GLIMEPIRIDE [Concomitant]
     Indication: DIABETES MELLITUS
     Dosage: 1 MG, 1 TABLET DAILY
     Dates: start: 20090101
  5. HYDERGINE [Suspect]
     Dosage: 4.5 MG, UNK
     Dates: end: 20100601
  6. ASPIRIN [Concomitant]
     Indication: BLOOD DISORDER
     Dosage: 100 MG, 1 TABLET DAILY
     Dates: start: 20040101, end: 20101201
  7. DIOVAN [Suspect]
     Indication: HYPERTENSION
     Dosage: UNK MG, 1 DF, DAILY
     Dates: start: 20040101
  8. SIMVASTATIN [Concomitant]
     Indication: BLOOD CHOLESTEROL
     Dosage: 20 MG, 1 TABLET DAILY
     Dates: start: 20040101

REACTIONS (8)
  - MACULAR DEGENERATION [None]
  - HEAD INJURY [None]
  - OEDEMA PERIPHERAL [None]
  - DIZZINESS [None]
  - FALL [None]
  - CELLULITIS [None]
  - PAIN [None]
  - ERYTHEMA [None]
